FAERS Safety Report 8715375 (Version 3)
Quarter: 2012Q4

REPORT INFORMATION
  Report Type: 
  Country: US (occurrence: US)
  Receive Date: 20120809
  Receipt Date: 20121218
  Transmission Date: 20130627
  Serious: Yes (Other)
  Sender: FDA-Public Use
  Company Number: US-JNJFOC-20120803614

PATIENT

DRUGS (4)
  1. EVICEL [Suspect]
     Indication: TISSUE SEALING
     Route: 061
  2. EVICEL [Suspect]
     Indication: HAEMOSTASIS
     Route: 061
  3. ALL OTHER THERAPEUTIC PRODUCT [Suspect]
     Indication: TISSUE SEALING
     Route: 061
  4. ALL OTHER THERAPEUTIC PRODUCT [Suspect]
     Indication: HAEMOSTASIS
     Route: 061

REACTIONS (4)
  - Spinal operation [Unknown]
  - Cerebrospinal fluid leakage [Unknown]
  - Off label use [Unknown]
  - Liquid product physical issue [Unknown]
